FAERS Safety Report 8855456 (Version 7)
Quarter: 2016Q2

REPORT INFORMATION
  Report Type: Report from Study
  Country: US (occurrence: US)
  Receive Date: 20121023
  Receipt Date: 20160406
  Transmission Date: 20160815
  Serious: Yes (Other)
  Sender: FDA-Public Use
  Company Number: US-AMGEN-USASP2012060041

PATIENT
  Age: 73 Year
  Sex: Male

DRUGS (4)
  1. ENBREL [Suspect]
     Active Substance: ETANERCEPT
     Indication: PSORIASIS
     Dosage: UNK
     Route: 065
  2. ENBREL [Suspect]
     Active Substance: ETANERCEPT
     Indication: PSORIATIC ARTHROPATHY
     Dosage: UNK
     Route: 065
     Dates: start: 2010, end: 201502
  3. THYROID [Concomitant]
     Active Substance: LEVOTHYROXINE\LIOTHYRONINE
     Dosage: UNK
  4. TESTOSTERONE. [Concomitant]
     Active Substance: TESTOSTERONE
     Dosage: UNK

REACTIONS (26)
  - Large intestine polyp [Recovered/Resolved]
  - Head and neck cancer [Unknown]
  - Squamous cell carcinoma of skin [Unknown]
  - Arthralgia [Recovered/Resolved]
  - Throat cancer [Unknown]
  - Skin cancer [Unknown]
  - Skin discolouration [Unknown]
  - Nodule [Not Recovered/Not Resolved]
  - Dry eye [Recovering/Resolving]
  - Visual impairment [Recovering/Resolving]
  - Eye pain [Recovering/Resolving]
  - Immunodeficiency [Unknown]
  - Fungal skin infection [Not Recovered/Not Resolved]
  - Full blood count decreased [Recovered/Resolved]
  - Lymphadenitis [Not Recovered/Not Resolved]
  - Lymphocyte count abnormal [Not Recovered/Not Resolved]
  - Weight decreased [Unknown]
  - Viral infection [Unknown]
  - Fatigue [Not Recovered/Not Resolved]
  - Basal cell carcinoma [Recovered/Resolved]
  - Lymphadenopathy [Not Recovered/Not Resolved]
  - Sinusitis [Recovering/Resolving]
  - Incorrect product storage [Unknown]
  - Injection site discomfort [Recovered/Resolved]
  - Prostatomegaly [Not Recovered/Not Resolved]
  - Anxiety [Unknown]

NARRATIVE: CASE EVENT DATE: 20120918
